FAERS Safety Report 22156019 (Version 1)
Quarter: 2023Q1

REPORT INFORMATION
  Report Type: Other
  Country: GB (occurrence: None)
  Receive Date: 20230330
  Receipt Date: 20230330
  Transmission Date: 20230417
  Serious: Yes (Other)
  Sender: FDA-Public Use
  Company Number: GB-Navinta LLC-000421

PATIENT
  Age: 82 Year
  Sex: Male

DRUGS (2)
  1. RIBAVIRIN [Suspect]
     Active Substance: RIBAVIRIN
     Indication: Hepatitis E
     Dosage: 400 MG TWICE DAILY
  2. PEGASYS [Suspect]
     Active Substance: PEGINTERFERON ALFA-2A
     Indication: Hepatitis E
     Dosage: 180 MCG WEEKLY

REACTIONS (5)
  - Hepatitis E [Recovered/Resolved]
  - Disease recurrence [Recovered/Resolved]
  - Treatment failure [Recovered/Resolved]
  - Hepatic fibrosis [Unknown]
  - Anaemia [Unknown]
